FAERS Safety Report 5604234-X (Version None)
Quarter: 2008Q1

REPORT INFORMATION
  Report Type: 
  Country: None (occurrence: None)
  Receive Date: 20080128
  Receipt Date: 20080123
  Transmission Date: 20080703
  Serious: Yes (Other)
  Sender: FDA-Public Use
  Company Number: JP-BRISTOL-MYERS SQUIBB COMPANY-14054530

PATIENT
  Age: 43 Year
  Sex: Male

DRUGS (1)
  1. BARACLUDE [Suspect]
     Indication: VIRAL HEPATITIS CARRIER
     Route: 048
     Dates: start: 20070501

REACTIONS (1)
  - HEPATIC FUNCTION ABNORMAL [None]
